FAERS Safety Report 6932034-7 (Version None)
Quarter: 2010Q3

REPORT INFORMATION
  Report Type: 
  Country: None (occurrence: None)
  Receive Date: 20100819
  Receipt Date: 20100810
  Transmission Date: 20110219
  Serious: Yes (Hospitalization, Other)
  Sender: FDA-Public Use
  Company Number: US-ASTRAZENECA-2009UW07471

PATIENT
  Age: 73 Year
  Sex: Female
  Weight: 79.4 kg

DRUGS (5)
  1. CRESTOR [Suspect]
     Indication: BLOOD CHOLESTEROL
     Route: 048
     Dates: start: 20071201, end: 20080101
  2. ACEBUTOLOL [Concomitant]
     Indication: WOLFF-PARKINSON-WHITE SYNDROME
  3. THYROID [Concomitant]
     Indication: THYROID DISORDER
  4. KLONOPIN [Concomitant]
     Indication: ANXIETY
  5. FISH OIL [Concomitant]
     Indication: BLOOD CHOLESTEROL

REACTIONS (9)
  - ARTHRALGIA [None]
  - FINGER DEFORMITY [None]
  - HAND DEFORMITY [None]
  - HEADACHE [None]
  - HOSPITALISATION [None]
  - NECK PAIN [None]
  - OEDEMA PERIPHERAL [None]
  - PAIN [None]
  - PAIN IN EXTREMITY [None]
